FAERS Safety Report 7765571-6 (Version None)
Quarter: 2011Q3

REPORT INFORMATION
  Report Type: 
  Country: None (occurrence: None)
  Receive Date: 20110921
  Receipt Date: 20110309
  Transmission Date: 20111222
  Serious: No
  Sender: FDA-Public Use
  Company Number: US-BAYER-2011-021708

PATIENT
  Age: 46 Year
  Sex: Female

DRUGS (4)
  1. IBUPROFEN [Concomitant]
  2. ULTRAVIST 150 [Suspect]
     Indication: COMPUTERISED TOMOGRAM
     Dosage: 100 ML, UNK
     Dates: start: 20110309, end: 20110309
  3. ZOCOR [Concomitant]
  4. ACCUPRIL [Concomitant]

REACTIONS (2)
  - URTICARIA [None]
  - PRURITUS [None]
